FAERS Safety Report 23195529 (Version 1)
Quarter: 2023Q4

REPORT INFORMATION
  Report Type: Report from Study
  Country: IT (occurrence: IT)
  Receive Date: 20231117
  Receipt Date: 20231117
  Transmission Date: 20240110
  Serious: Yes (Hospitalization, Other)
  Sender: FDA-Public Use
  Company Number: None

PATIENT
  Age: 5 Year
  Sex: Male
  Weight: 20 kg

DRUGS (8)
  1. METHOTREXATE (METHOTREXATE SODIUM) [Suspect]
     Active Substance: METHOTREXATE SODIUM
     Indication: Acute lymphocytic leukaemia recurrent
     Dosage: 77.50 MG INFUSION OVER 30 MIN. + 698 MG SLOW INFUSION OVER 23.5 HOURS, DURATION : 1 DAY
     Dates: start: 20230911, end: 20230912
  2. VINCRISTINE [Suspect]
     Active Substance: VINCRISTINE
     Indication: Acute lymphocytic leukaemia recurrent
     Dosage: DURATION : 14 DAYS
     Dates: start: 20230911, end: 20230925
  3. ONCASPAR [Suspect]
     Active Substance: PEGASPARGASE
     Indication: Acute lymphocytic leukaemia recurrent
     Dosage: 776 U/I
     Route: 065
     Dates: start: 20230928, end: 20230928
  4. ONCASPAR [Suspect]
     Active Substance: PEGASPARGASE
     Indication: Acute lymphocytic leukaemia recurrent
     Route: 065
     Dates: start: 20230914, end: 20230914
  5. CYTARABINE [Suspect]
     Active Substance: CYTARABINE
     Indication: Acute lymphocytic leukaemia recurrent
     Dosage: DURATION : 1 DAY
     Route: 065
     Dates: start: 20230925, end: 20230926
  6. PANTOPRAZOLE SUN PHARMA [Concomitant]
     Indication: Prophylaxis against gastrointestinal ulcer
     Dosage: DURATION : 36 DAYS
     Dates: start: 20230909, end: 20231015
  7. DECADRON [Concomitant]
     Active Substance: DEXAMETHASONE
     Indication: Acute lymphocytic leukaemia recurrent
     Dosage: DURATION : 19 DAYS
     Dates: start: 20230911, end: 20230930
  8. METHYLPREDNISOLONE [Concomitant]
     Active Substance: METHYLPREDNISOLONE
     Indication: Acute lymphocytic leukaemia recurrent
     Dosage: DURATION : 3 DAYS
     Dates: start: 20230908, end: 20230911

REACTIONS (7)
  - Pneumonia [Recovered/Resolved]
  - Pancytopenia [Recovered/Resolved]
  - Neutropenia [Recovered/Resolved]
  - Hypertransaminasaemia [Recovered/Resolved]
  - Anaemia [Recovering/Resolving]
  - Arthralgia [Recovering/Resolving]
  - Alopecia [Recovering/Resolving]

NARRATIVE: CASE EVENT DATE: 20230915
